FAERS Safety Report 18944722 (Version 1)
Quarter: 2021Q1

REPORT INFORMATION
  Report Type: Spontaneous
  Country: DE (occurrence: DE)
  Receive Date: 20210226
  Receipt Date: 20210226
  Transmission Date: 20210420
  Serious: Yes (Hospitalization, Other)
  Sender: FDA-Public Use
  Company Number: DE-TEVA-2021-DE-1883416

PATIENT
  Age: 31 Month
  Sex: Male
  Weight: 15 kg

DRUGS (1)
  1. PREDNISOLON [Suspect]
     Active Substance: PREDNISOLONE
     Indication: NEPHROTIC SYNDROME
     Dosage: 15MG ? 15MG ? 10MG
     Route: 048
     Dates: start: 20200410, end: 20200512

REACTIONS (8)
  - Oedema [Unknown]
  - Hypoalbuminaemia [Unknown]
  - Product administration error [Unknown]
  - Nephrotic syndrome [Unknown]
  - Treatment noncompliance [Unknown]
  - Proteinuria [Unknown]
  - Ascites [Unknown]
  - Product administration interrupted [Recovered/Resolved]

NARRATIVE: CASE EVENT DATE: 20200513
